FAERS Safety Report 8850751 (Version 1)
Quarter: 2012Q4

REPORT INFORMATION
  Report Type: 
  Country: US (occurrence: US)
  Receive Date: 20121019
  Receipt Date: 20121019
  Transmission Date: 20130627
  Serious: No
  Sender: FDA-Public Use
  Company Number: US-TARO-2012P1018366

PATIENT
  Age: 7 Year
  Sex: Male

DRUGS (1)
  1. HYDROCORTISONE VALERATE [Suspect]
     Dates: start: 201112

REACTIONS (1)
  - Drug ineffective [Not Recovered/Not Resolved]
